FAERS Safety Report 10039367 (Version 2)
Quarter: 2014Q2

REPORT INFORMATION
  Report Type: Report from Study
  Country: US (occurrence: US)
  Receive Date: 20140326
  Receipt Date: 20140602
  Transmission Date: 20141212
  Serious: Yes (Hospitalization, Other)
  Sender: FDA-Public Use
  Company Number: PHHY2014US032860

PATIENT
  Age: 59 Year
  Sex: Female
  Weight: 65.5 kg

DRUGS (11)
  1. TEGRETOL [Suspect]
     Indication: BIPOLAR I DISORDER
     Dosage: 300 MG, DAILY
     Route: 048
     Dates: start: 20081001, end: 20130913
  2. TEGRETOL [Suspect]
     Dosage: 300 MG, DAILY (100 MG IN MORNING AND 200 MG AT BEDTIME)
     Dates: start: 20131004
  3. ZYBAN [Suspect]
     Indication: SMOKING CESSATION THERAPY
     Dosage: 150 MG, BID
     Route: 048
     Dates: end: 20130930
  4. CHANTIX [Suspect]
     Indication: SMOKING CESSATION THERAPY
     Dosage: 1 MG, BID
     Route: 048
     Dates: end: 20130930
  5. NICOTINE [Suspect]
     Dosage: 21 MG, QD
     Route: 062
     Dates: end: 20130930
  6. EFFEXOR [Suspect]
     Indication: DEPRESSION
     Dosage: 300 MG, DAILY
     Route: 048
     Dates: start: 20081001, end: 20130930
  7. EFFEXOR [Suspect]
     Dosage: 300 MG, MORNING
     Dates: start: 20131004
  8. SEROQUEL [Suspect]
     Indication: MANIA
     Dosage: 300 MG, DAILY
     Route: 048
     Dates: start: 20081001, end: 20130930
  9. SEROQUEL [Suspect]
     Dosage: 300 MG, DAILY (100 MG IN MORNING AND 200 MG AT BED TIME)
     Dates: start: 20131004
  10. CODEINE W/PARACETAMOL [Concomitant]
     Indication: PAIN
     Dosage: 30/300 MG, PRN
     Dates: start: 20130914, end: 20130916
  11. IBUPROFEN [Concomitant]
     Indication: PAIN
     Dosage: 800 MG, TID
     Dates: start: 20130912

REACTIONS (28)
  - Neuropsychiatric syndrome [Recovered/Resolved]
  - Psychiatric symptom [Recovered/Resolved]
  - Hypoaesthesia [Unknown]
  - Delusion [Unknown]
  - Exhibitionism [Unknown]
  - Movement disorder [Unknown]
  - Akathisia [Unknown]
  - Psychotic disorder [Unknown]
  - Sleep disorder [Unknown]
  - Thinking abnormal [Unknown]
  - Drooling [Unknown]
  - Hemiparesis [Recovered/Resolved]
  - Neurological symptom [Unknown]
  - Coordination abnormal [Unknown]
  - Aggression [Recovered/Resolved]
  - Dysarthria [Unknown]
  - Dizziness [Unknown]
  - Paraesthesia [Unknown]
  - Fatigue [Unknown]
  - Agitation [Unknown]
  - Headache [Unknown]
  - Convulsion [Recovered/Resolved]
  - Pelvic fracture [Recovered/Resolved]
  - Insomnia [Unknown]
  - Anxiety [Unknown]
  - Balance disorder [Unknown]
  - Rib fracture [Not Recovered/Not Resolved]
  - Osteopenia [Not Recovered/Not Resolved]
